FAERS Safety Report 11785642 (Version 1)
Quarter: 2015Q4

REPORT INFORMATION
  Report Type: Spontaneous
  Country: US (occurrence: None)
  Receive Date: 20151125
  Receipt Date: 20151125
  Transmission Date: 20160305
  Serious: No
  Sender: FDA-Public Use
  Company Number: None

PATIENT
  Age: 59 Year
  Sex: Male
  Weight: 78 kg

DRUGS (1)
  1. LEDIPASVIR/SOFOSBUVIR [Suspect]
     Active Substance: LEDIPASVIR\SOFOSBUVIR
     Indication: HEPATITIS C
     Route: 048
     Dates: start: 20150806

REACTIONS (4)
  - Gingival bleeding [None]
  - Photosensitivity reaction [None]
  - Haemorrhage [None]
  - Increased tendency to bruise [None]

NARRATIVE: CASE EVENT DATE: 20150806
